APPROVED DRUG PRODUCT: TRIFLUOPERAZINE HYDROCHLORIDE
Active Ingredient: TRIFLUOPERAZINE HYDROCHLORIDE
Strength: EQ 10MG BASE/ML
Dosage Form/Route: CONCENTRATE;ORAL
Application: A088143 | Product #001
Applicant: WOCKHARDT EU OPERATIONS (SWISS) AG
Approved: Jul 26, 1983 | RLD: No | RS: No | Type: DISCN